FAERS Safety Report 10620409 (Version 2)
Quarter: 2014Q4

REPORT INFORMATION
  Report Type: Report from Study
  Country: FR (occurrence: FR)
  Receive Date: 20141202
  Receipt Date: 20141202
  Transmission Date: 20150529
  Serious: Yes (Life-Threatening, Hospitalization)
  Sender: FDA-Public Use
  Company Number: FR-JNJFOC-20141010670

PATIENT
  Age: 80 Year
  Sex: Male
  Weight: 68 kg

DRUGS (6)
  1. IBRUTINIB [Suspect]
     Active Substance: IBRUTINIB
     Indication: MANTLE CELL LYMPHOMA
     Route: 048
     Dates: start: 201409
  2. IBRUTINIB [Suspect]
     Active Substance: IBRUTINIB
     Indication: MANTLE CELL LYMPHOMA
     Route: 048
     Dates: start: 20140827, end: 201409
  3. KARDEGIC [Concomitant]
     Active Substance: ASPIRIN LYSINE
  4. ATENOLOL. [Concomitant]
     Active Substance: ATENOLOL
  5. AMIODARONE [Concomitant]
     Active Substance: AMIODARONE
  6. LEVOTHYROX [Concomitant]
     Active Substance: LEVOTHYROXINE
     Dosage: DOSE 100 (UNITS NOT SPECIFIED)

REACTIONS (3)
  - Lung disorder [Recovered/Resolved]
  - Off label use [Not Recovered/Not Resolved]
  - Leukostasis syndrome [Recovered/Resolved]

NARRATIVE: CASE EVENT DATE: 201409
